FAERS Safety Report 13037258 (Version 1)
Quarter: 2016Q4

REPORT INFORMATION
  Report Type: Spontaneous
  Country: US (occurrence: US)
  Receive Date: 20161216
  Receipt Date: 20161216
  Transmission Date: 20170207
  Serious: No
  Sender: FDA-Public Use
  Company Number: US-GLAXOSMITHKLINE-US2016186800

PATIENT
  Age: 61 Year
  Sex: Female

DRUGS (1)
  1. VENTOLIN HFA [Suspect]
     Active Substance: ALBUTEROL SULFATE
     Indication: ASTHMA
     Dosage: 2 PUFF(S), PRN
     Route: 055

REACTIONS (7)
  - Asthma [Recovering/Resolving]
  - Epistaxis [Recovering/Resolving]
  - Drug ineffective [Unknown]
  - Dyspnoea [Not Recovered/Not Resolved]
  - Oxygen saturation decreased [Recovering/Resolving]
  - Nasal inflammation [Recovering/Resolving]
  - Device use error [Recovered/Resolved]

NARRATIVE: CASE EVENT DATE: 201609
